FAERS Safety Report 6169301-3 (Version None)
Quarter: 2009Q2

REPORT INFORMATION
  Report Type: 
  Country: None (occurrence: None)
  Receive Date: 20090424
  Receipt Date: 20090409
  Transmission Date: 20091009
  Serious: Yes (Other)
  Sender: FDA-Public Use
  Company Number: 2009001098

PATIENT
  Age: 59 Year
  Sex: Male

DRUGS (8)
  1. TARCEVA [Suspect]
     Indication: LUNG NEOPLASM MALIGNANT
     Dosage: (150 MG, QD), ORAL; ORAL
     Route: 048
     Dates: start: 20081209, end: 20081201
  2. TARCEVA [Suspect]
     Indication: LUNG NEOPLASM MALIGNANT
     Dosage: (150 MG, QD), ORAL; ORAL
     Route: 048
     Dates: start: 20090302
  3. DIPYRONE (METAMIZOLE SODIUM) [Concomitant]
  4. TYLEX (TYLEX) [Concomitant]
  5. CODEINE SUL TAB [Concomitant]
  6. DECADRON [Concomitant]
  7. HIDANTAL [Concomitant]
  8. AZITHROMYCIN [Concomitant]

REACTIONS (4)
  - ANAEMIA [None]
  - BACTERAEMIA [None]
  - METASTASES TO BONE [None]
  - RASH PUSTULAR [None]
